FAERS Safety Report 7943499-6 (Version None)
Quarter: 2011Q4

REPORT INFORMATION
  Report Type: 
  Country: None (occurrence: None)
  Receive Date: 20111128
  Receipt Date: 20111123
  Transmission Date: 20120403
  Serious: Yes (Hospitalization, Other)
  Sender: FDA-Public Use
  Company Number: US-BAYER-2011-107947

PATIENT
  Age: 67 Year
  Sex: Male

DRUGS (2)
  1. NEXAVAR [Suspect]
     Indication: HEPATIC NEOPLASM MALIGNANT
     Dosage: 400 MG, BID
     Route: 048
     Dates: start: 20111101
  2. NEXAVAR [Suspect]
     Dosage: 200 MG Q AM AND 400 MG Q PM

REACTIONS (7)
  - DIARRHOEA [None]
  - CONSTIPATION [None]
  - THROMBOSIS [None]
  - BONE DISORDER [None]
  - FATIGUE [None]
  - ABDOMINAL PAIN [None]
  - HYPOPHAGIA [None]
